FAERS Safety Report 8893847 (Version 1)
Quarter: 2012Q4

REPORT INFORMATION
  Report Type: 
  Country: US (occurrence: US)
  Receive Date: 20121107
  Receipt Date: 20121107
  Transmission Date: 20130627
  Serious: No
  Sender: FDA-Public Use
  Company Number: US-AMGEN-USASP2012056655

PATIENT
  Age: 14 Year
  Sex: Male
  Weight: 51.7 kg

DRUGS (3)
  1. ENBREL [Suspect]
     Indication: JUVENILE ARTHRITIS
     Dosage: 50 mg, qwk
     Route: 058
     Dates: start: 201112
  2. METHOTREXATE [Concomitant]
     Dosage: 10 mg, qwk
     Route: 048
     Dates: start: 201106
  3. FOLIC ACID [Concomitant]
     Dosage: 1 mg, UNK
     Route: 048

REACTIONS (2)
  - Injection site injury [Recovered/Resolved]
  - Injection site haemorrhage [Not Recovered/Not Resolved]
